FAERS Safety Report 9590370 (Version 1)
Quarter: 2013Q4

REPORT INFORMATION
  Report Type: Spontaneous
  Country: US (occurrence: US)
  Receive Date: 20131003
  Receipt Date: 20131003
  Transmission Date: 20140711
  Serious: No
  Sender: FDA-Public Use
  Company Number: US-AMGEN-USASP2012077120

PATIENT
  Age: 65 Year
  Sex: Female
  Weight: 86.17 kg

DRUGS (12)
  1. ENBREL [Suspect]
     Indication: PRODUCT USED FOR UNKNOWN INDICATION
     Dosage: 50 MG, QWK
     Route: 058
     Dates: end: 20121022
  2. CELEBREX [Concomitant]
     Dosage: 200 MG, UNK
  3. NORVASC [Concomitant]
     Dosage: 5 MG, UNK
  4. ARAVA [Concomitant]
     Dosage: 20 MG, UNK
  5. ATENOLOL [Concomitant]
     Dosage: 100 MG, UNK
  6. GABAPENTIN [Concomitant]
     Dosage: 100 MG, UNK
  7. PRILOSEC                           /00661201/ [Concomitant]
     Dosage: 20 MG, UNK
  8. KLOR-CON M10 [Concomitant]
     Dosage: 10 MEQ ER, UNK
  9. MULTIVITAMINS, PLAIN [Concomitant]
     Dosage: UNK
  10. HYDROCODONE W/APAP                 /01554201/ [Concomitant]
     Dosage: 10-300 MG, UNK
  11. CALCIUM [Concomitant]
     Dosage: 500 UNK, UNK
  12. VESICARE [Concomitant]
     Dosage: 5 MG, UNK

REACTIONS (1)
  - Herpes zoster [Unknown]
